FAERS Safety Report 11118062 (Version 2)
Quarter: 2015Q2

REPORT INFORMATION
  Report Type: Spontaneous
  Country: US (occurrence: None)
  Receive Date: 20150514
  Receipt Date: 20150526
  Transmission Date: 20150821
  Serious: Yes (Other)
  Sender: FDA-Public Use
  Company Number: US-001929

PATIENT
  Age: 52 Year
  Sex: Female
  Weight: 86.64 kg

DRUGS (8)
  1. CALCITRIOL. [Concomitant]
     Active Substance: CALCITRIOL
  2. CITRACAL [Concomitant]
     Active Substance: CALCIUM CITRATE
  3. DIETARY SUPPLEMENT [Concomitant]
     Active Substance: DIETARY SUPPLEMENT
  4. PARATHYROID HORMONE [Suspect]
     Active Substance: PARATHYROID HORMONE
     Indication: HYPOPARATHYROIDISM
     Dosage: FREQUENCY UNKNOWN
     Route: 058
     Dates: start: 20150426
  5. CALCITRIOL. [Concomitant]
     Active Substance: CALCITRIOL
  6. SYNTHROID [Concomitant]
     Active Substance: LEVOTHYROXINE SODIUM
  7. INDAPAMIDE. [Concomitant]
     Active Substance: INDAPAMIDE
  8. CALCIUM [Concomitant]
     Active Substance: CALCIUM

REACTIONS (11)
  - Pollakiuria [None]
  - Irritability [None]
  - Initial insomnia [None]
  - Feeling abnormal [None]
  - Tinnitus [None]
  - Headache [None]
  - Thirst [None]
  - Stress [None]
  - Fatigue [None]
  - Back pain [None]
  - Hypercalcaemia [None]

NARRATIVE: CASE EVENT DATE: 20150426
